FAERS Safety Report 21976219 (Version 1)
Quarter: 2023Q1

REPORT INFORMATION
  Report Type: Spontaneous
  Country: US (occurrence: US)
  Receive Date: 20230210
  Receipt Date: 20230210
  Transmission Date: 20230417
  Serious: No
  Sender: FDA-Public Use
  Company Number: US-BRISTOL-MYERS SQUIBB COMPANY-2023-019762

PATIENT
  Sex: Female

DRUGS (1)
  1. ABRAXANE [Suspect]
     Active Substance: PACLITAXEL
     Indication: Product used for unknown indication
     Dosage: DOSE: 1 ?STRENGTH AND PRESENTATION OF THE AE: 250 MG INTRAVENOUS BAG

REACTIONS (1)
  - Accidental exposure to product [Unknown]

NARRATIVE: CASE EVENT DATE: 20230124
